FAERS Safety Report 4714333-2 (Version None)
Quarter: 2005Q3

REPORT INFORMATION
  Report Type: 
  Country: None (occurrence: None)
  Receive Date: 20050714
  Receipt Date: 20040614
  Transmission Date: 20060218
  Serious: Yes (Death)
  Sender: FDA-Public Use
  Company Number: 200412338FR

PATIENT
  Age: 32 Year
  Sex: Female

DRUGS (6)
  1. LASIX [Suspect]
     Route: 042
     Dates: start: 20040316
  2. PREDNISONE [Suspect]
     Route: 042
     Dates: start: 20040316
  3. PROGRAF [Suspect]
     Route: 048
     Dates: start: 20040316, end: 20040321
  4. SIMULECT [Suspect]
     Route: 042
     Dates: start: 20040316, end: 20040320
  5. VANCOMYCIN [Suspect]
     Route: 042
     Dates: start: 20040316, end: 20040316
  6. CELLCEPT [Concomitant]
     Route: 048
     Dates: start: 20040316

REACTIONS (4)
  - BLINDNESS [None]
  - CONVULSION [None]
  - HEMIPLEGIA [None]
  - ISCHAEMIC STROKE [None]
